FAERS Safety Report 8067511 (Version 3)
Quarter: 2014Q2

REPORT INFORMATION
  Report Type: Spontaneous
  Country: US (occurrence: US)
  Receive Date: 20110803
  Receipt Date: 20140408
  Transmission Date: 20141212
  Serious: Yes (Hospitalization)
  Sender: FDA-Public Use
  Company Number: US-B.I. PHARMACEUTICALS,INC./RIDGEFIELD-2011-BP-18791BP

PATIENT
  Age: 63 Year
  Sex: Female
  Weight: 149.69 kg

DRUGS (7)
  1. PRADAXA [Suspect]
     Indication: ATRIAL FIBRILLATION
     Dosage: 300 MG
     Route: 048
     Dates: start: 20110720, end: 20110721
  2. PRADAXA [Suspect]
     Indication: ANTICOAGULANT THERAPY
  3. GOODY POWDER [Concomitant]
     Route: 065
  4. FUROSEMIDE [Concomitant]
     Route: 065
     Dates: start: 2000
  5. ADVAIR [Concomitant]
     Route: 065
     Dates: start: 2001
  6. CARTIA [Concomitant]
     Route: 065
     Dates: start: 2000
  7. NASONEX [Concomitant]
     Route: 065
     Dates: start: 2001

REACTIONS (4)
  - Diverticulitis intestinal haemorrhagic [Recovered/Resolved]
  - Haemorrhagic anaemia [Unknown]
  - Coagulopathy [Unknown]
  - Thrombocytopenia [Unknown]
